FAERS Safety Report 4595074-1 (Version None)
Quarter: 2005Q1

REPORT INFORMATION
  Report Type: 
  Country: None (occurrence: None)
  Receive Date: 20050223
  Receipt Date: 20050210
  Transmission Date: 20050727
  Serious: Yes (Other)
  Sender: FDA-Public Use
  Company Number: 2005-BL-00044BL

PATIENT
  Age: 67 Year
  Sex: Female

DRUGS (1)
  1. MOBIC [Suspect]
     Indication: SCIATICA
     Dosage: (15 NR, ONCE) IM
     Route: 030

REACTIONS (1)
  - EPILEPSY [None]
